FAERS Safety Report 23777020 (Version 3)
Quarter: 2024Q3

REPORT INFORMATION
  Report Type: Spontaneous
  Country: US (occurrence: None)
  Receive Date: 20240424
  Receipt Date: 20240701
  Transmission Date: 20241016
  Serious: Yes (Hospitalization)
  Sender: ASTRAZENECA
  Company Number: 2024A091740

PATIENT
  Age: 60 Year
  Sex: Female
  Weight: 109 kg

DRUGS (2)
  1. TRUQAP [Suspect]
     Active Substance: CAPIVASERTIB
     Indication: Breast cancer metastatic
     Route: 048
     Dates: start: 20240313, end: 20240328
  2. TRUQAP [Suspect]
     Active Substance: CAPIVASERTIB
     Indication: Breast cancer metastatic
     Route: 048
     Dates: start: 20240202, end: 20240313

REACTIONS (4)
  - Haematuria [Recovered/Resolved]
  - Renal impairment [Unknown]
  - Acute kidney injury [Recovered/Resolved]
  - Blood creatinine increased [Unknown]

NARRATIVE: CASE EVENT DATE: 20240328
